FAERS Safety Report 4809176-5 (Version None)
Quarter: 2005Q4

REPORT INFORMATION
  Report Type: 
  Country: None (occurrence: None)
  Receive Date: 20051025
  Receipt Date: 20051014
  Transmission Date: 20060501
  Serious: Yes (Hospitalization)
  Sender: FDA-Public Use
  Company Number: PHNR2005AU01533

PATIENT
  Age: 82 Year
  Sex: Female

DRUGS (6)
  1. SLOW-K [Suspect]
     Dosage: 2 TABLETS/DAY
  2. PERINDOPRIL [Concomitant]
     Dosage: 2 MG/DAY
  3. PAROXETINE HCL [Concomitant]
     Dosage: 20 MG/DAY
  4. ATORVASTATIN [Concomitant]
     Dosage: 40 MG/DAY
  5. CARVEDILOL [Suspect]
     Dosage: 12.5 MG, BID
  6. ASPIRIN [Concomitant]
     Dosage: 100 MG/DAY

REACTIONS (3)
  - CARDIAC FAILURE [None]
  - CARDIAC OUTPUT DECREASED [None]
  - FATIGUE [None]
